FAERS Safety Report 7757660-7 (Version None)
Quarter: 2011Q3

REPORT INFORMATION
  Report Type: 
  Country: None (occurrence: None)
  Receive Date: 20110916
  Receipt Date: 20110907
  Transmission Date: 20111222
  Serious: Yes (Hospitalization)
  Sender: FDA-Public Use
  Company Number: US-CELGENEUS-163-21880-11090700

PATIENT
  Sex: Male

DRUGS (8)
  1. ZOCOR [Concomitant]
     Route: 065
  2. DEXAMETHASONE [Concomitant]
     Route: 065
  3. SENNA [Concomitant]
     Route: 065
  4. PROCHLORPERAZINE [Concomitant]
     Route: 065
  5. STOOL SOFTENER [Concomitant]
     Route: 065
  6. NIFEDIPINE [Concomitant]
     Route: 065
  7. REVLIMID [Suspect]
     Indication: MULTIPLE MYELOMA
     Dosage: 15 MILLIGRAM
     Route: 048
     Dates: start: 20110801
  8. ACYCLOVIR [Concomitant]
     Route: 065

REACTIONS (2)
  - BLOOD DISORDER [None]
  - DIZZINESS [None]
